FAERS Safety Report 7529426-4 (Version None)
Quarter: 2011Q2

REPORT INFORMATION
  Report Type: 
  Country: None (occurrence: None)
  Receive Date: 20110607
  Receipt Date: 20110601
  Transmission Date: 20111010
  Serious: Yes (Death, Hospitalization)
  Sender: FDA-Public Use
  Company Number: PL-JNJFOC-20110601382

PATIENT
  Age: 61 Year
  Sex: Female
  Weight: 43 kg

DRUGS (7)
  1. GOLIMUMAB [Suspect]
     Indication: RHEUMATOID ARTHRITIS
     Route: 058
     Dates: start: 20100715, end: 20110511
  2. ALENDRONIC ACID [Concomitant]
     Indication: OSTEOARTHRITIS
     Route: 048
     Dates: start: 20100616, end: 20110522
  3. ALENDRONIC ACID [Concomitant]
     Indication: RHEUMATOID ARTHRITIS
     Route: 048
     Dates: start: 20100616, end: 20110522
  4. NAPROXEN SODIUM [Concomitant]
     Indication: RHEUMATOID ARTHRITIS
     Route: 048
     Dates: start: 20100604, end: 20110522
  5. METHOTREXATE [Concomitant]
     Indication: RHEUMATOID ARTHRITIS
     Route: 048
     Dates: start: 20100531, end: 20110522
  6. PREDNISONE [Concomitant]
     Indication: RHEUMATOID ARTHRITIS
     Route: 048
     Dates: start: 20100301, end: 20110601
  7. TRAMADOL HYDRCHLORIDE [Concomitant]
     Indication: RHEUMATOID ARTHRITIS
     Route: 048
     Dates: start: 20091101, end: 20110522

REACTIONS (1)
  - PULMONARY TUBERCULOSIS [None]
